FAERS Safety Report 16809630 (Version 3)
Quarter: 2019Q4

REPORT INFORMATION
  Report Type: Spontaneous
  Country: US (occurrence: US)
  Receive Date: 20190916
  Receipt Date: 20191227
  Transmission Date: 20200122
  Serious: Yes (Other)
  Sender: FDA-Public Use
  Company Number: US-AMGEN-USASP2019148168

PATIENT
  Sex: Male

DRUGS (15)
  1. ATORVASTATIN CALCIUM. [Concomitant]
     Active Substance: ATORVASTATIN CALCIUM
     Dosage: UNK
  2. NORCO [Concomitant]
     Active Substance: ACETAMINOPHEN\HYDROCODONE BITARTRATE
     Dosage: UNK
  3. NOVOLOG [Concomitant]
     Active Substance: INSULIN ASPART
     Dosage: UNK
  4. RISPERIDONE. [Concomitant]
     Active Substance: RISPERIDONE
     Dosage: 4 MILLIGRAM
  5. WELLBUTRIN [Concomitant]
     Active Substance: BUPROPION HYDROCHLORIDE
     Dosage: 150 MILLIGRAM
  6. NORTRIPTYLINE HCL [Concomitant]
     Active Substance: NORTRIPTYLINE HYDROCHLORIDE
     Dosage: UNK
  7. ENBREL [Suspect]
     Active Substance: ETANERCEPT
     Dosage: 50 MILLIGRAM, QWK
     Route: 058
  8. ATOMOXETINE. [Concomitant]
     Active Substance: ATOMOXETINE HYDROCHLORIDE
     Dosage: 100 MILLIGRAM
  9. ENBREL [Suspect]
     Active Substance: ETANERCEPT
     Indication: RHEUMATOID ARTHRITIS
     Dosage: 50 MILLIGRAM, QWK
     Route: 058
     Dates: start: 20190824
  10. GABAPENTIN. [Concomitant]
     Active Substance: GABAPENTIN
     Dosage: UNK
  11. SILDENAFIL CITRATE. [Concomitant]
     Active Substance: SILDENAFIL CITRATE
     Dosage: UNK
  12. ENBREL [Suspect]
     Active Substance: ETANERCEPT
     Dosage: 50 MILLIGRAM, QWK
     Route: 058
  13. CHANTIX [Concomitant]
     Active Substance: VARENICLINE TARTRATE
     Dosage: UNK
  14. DOXEPIN HCL [Concomitant]
     Active Substance: DOXEPIN HYDROCHLORIDE
     Dosage: UNK
  15. MOTRIN IB [Concomitant]
     Active Substance: IBUPROFEN
     Dosage: UNK

REACTIONS (5)
  - Decreased appetite [Unknown]
  - Neuropathy peripheral [Unknown]
  - Drug ineffective [Unknown]
  - Insomnia [Not Recovered/Not Resolved]
  - Depression [Not Recovered/Not Resolved]

NARRATIVE: CASE EVENT DATE: 2019
